FAERS Safety Report 10267037 (Version 1)
Quarter: 2014Q2

REPORT INFORMATION
  Report Type: Spontaneous
  Country: US (occurrence: None)
  Receive Date: 20140626
  Receipt Date: 20140626
  Transmission Date: 20141212
  Serious: Yes (Disabling)
  Sender: FDA-Public Use
  Company Number: None

PATIENT
  Age: 67 Year
  Sex: Female
  Weight: 73.94 kg

DRUGS (7)
  1. MARCAINE [Suspect]
     Indication: ARTHRITIS
     Dates: start: 20140226, end: 20140226
  2. LOSARTAN BLOOD PRESSURE MEDICINE [Concomitant]
  3. CENTRUM SILVER FOR WOMEN [Concomitant]
  4. FISH OIL [Concomitant]
  5. BABY ASPIRIN [Concomitant]
  6. BIOTIN [Concomitant]
  7. CALCIUM [Concomitant]

REACTIONS (3)
  - Injection site pain [None]
  - Tinnitus [None]
  - Vertigo positional [None]
